FAERS Safety Report 4951537-8 (Version None)
Quarter: 2006Q1

REPORT INFORMATION
  Report Type: 
  Country: None (occurrence: None)
  Receive Date: 20060317
  Receipt Date: 20060306
  Transmission Date: 20060701
  Serious: Yes (Other)
  Sender: FDA-Public Use
  Company Number: 2006033517

PATIENT
  Sex: Female

DRUGS (1)
  1. REVATIO [Suspect]
     Indication: HEART INJURY

REACTIONS (1)
  - LUNG TRANSPLANT [None]
